FAERS Safety Report 9633442 (Version 2)
Quarter: 2013Q4

REPORT INFORMATION
  Report Type: Spontaneous
  Country: JP (occurrence: JP)
  Receive Date: 20131021
  Receipt Date: 20131204
  Transmission Date: 20140711
  Serious: Yes (Other)
  Sender: FDA-Public Use
  Company Number: JP-ELI_LILLY_AND_COMPANY-JP201310004062

PATIENT
  Sex: Female

DRUGS (7)
  1. EVISTA [Suspect]
     Indication: OSTEOPOROSIS
     Dosage: 60 MG, QD
     Route: 048
     Dates: start: 20100625
  2. NEUROTROPIN                        /06251301/ [Concomitant]
     Indication: LUMBAR SPINAL STENOSIS
     Dosage: 8 IU, BID
     Route: 048
  3. BAYASPIRIN [Concomitant]
     Indication: ARRHYTHMIA
     Dosage: 100 MG, QD
     Route: 048
  4. GASTER                             /00706001/ [Concomitant]
     Indication: GASTRITIS
     Dosage: 10 MG, QD
     Route: 048
  5. NORVASC [Concomitant]
     Indication: HYPERTENSION
     Dosage: 2.5 MG, QD
     Route: 048
  6. METHYCOBAL [Concomitant]
     Indication: NEUROPATHY PERIPHERAL
     Dosage: 500 UG, TID
     Route: 048
  7. MAGNESIUM OXIDE [Concomitant]
     Indication: CONSTIPATION
     Dosage: 1 G, QD
     Route: 048

REACTIONS (2)
  - Breast cancer [Not Recovered/Not Resolved]
  - Breast mass [Unknown]
